FAERS Safety Report 17923219 (Version 1)
Quarter: 2020Q2

REPORT INFORMATION
  Report Type: Spontaneous
  Country: US (occurrence: US)
  Receive Date: 20200622
  Receipt Date: 20200622
  Transmission Date: 20200714
  Serious: Yes (Disabling)
  Sender: FDA-Public Use
  Company Number: None

PATIENT
  Age: 42 Year
  Sex: Male
  Weight: 69.75 kg

DRUGS (3)
  1. NP THYROID [Suspect]
     Active Substance: LEVOTHYROXINE\LIOTHYRONINE
  2. NP THYROID [Suspect]
     Active Substance: LEVOTHYROXINE\LIOTHYRONINE
     Indication: BASEDOW^S DISEASE
     Dosage: ?          QUANTITY:1 TABLET(S);?
     Route: 048
  3. NP THYROID [Suspect]
     Active Substance: LEVOTHYROXINE\LIOTHYRONINE
     Indication: HYPERTHYROIDISM
     Dosage: ?          QUANTITY:1 TABLET(S);?
     Route: 048

REACTIONS (8)
  - Irritability [None]
  - Dyspnoea [None]
  - Heart rate increased [None]
  - Disturbance in attention [None]
  - Peripheral swelling [None]
  - Asthenia [None]
  - Chest pain [None]
  - Memory impairment [None]

NARRATIVE: CASE EVENT DATE: 20190801
